FAERS Safety Report 7075717-3 (Version None)
Quarter: 2010Q4

REPORT INFORMATION
  Report Type: 
  Country: None (occurrence: None)
  Receive Date: 20101101
  Receipt Date: 20101021
  Transmission Date: 20110411
  Serious: Yes (Hospitalization)
  Sender: FDA-Public Use
  Company Number: US-BIOGENIDEC-2010BI020103

PATIENT
  Age: 50 Year
  Sex: Female

DRUGS (1)
  1. TYSABRI [Suspect]
     Indication: MULTIPLE SCLEROSIS
     Route: 042
     Dates: start: 20080430, end: 20100412

REACTIONS (6)
  - CONTUSION [None]
  - DECUBITUS ULCER [None]
  - FALL [None]
  - FIBULA FRACTURE [None]
  - INCISION SITE INFECTION [None]
  - TIBIA FRACTURE [None]
